FAERS Safety Report 7057995-X (Version None)
Quarter: 2010Q4

REPORT INFORMATION
  Report Type: 
  Country: None (occurrence: None)
  Receive Date: 20101022
  Receipt Date: 20101012
  Transmission Date: 20110411
  Serious: Yes (Hospitalization)
  Sender: FDA-Public Use
  Company Number: PHHY2010US47258

PATIENT
  Sex: Male

DRUGS (3)
  1. NEORAL [Suspect]
     Indication: RENAL TRANSPLANT
     Dosage: 125 MG, BID
     Route: 048
     Dates: start: 19990101
  2. NEORAL [Suspect]
     Dosage: 100 MG, BID
     Route: 048
     Dates: start: 20100301
  3. CELLCEPT [Concomitant]

REACTIONS (6)
  - BLOOD GLUCOSE INCREASED [None]
  - DEHYDRATION [None]
  - DRUG DOSE OMISSION [None]
  - FEELING HOT [None]
  - MUSCULOSKELETAL STIFFNESS [None]
  - RENAL PAIN [None]
